FAERS Safety Report 23556539 (Version 19)
Quarter: 2024Q3

REPORT INFORMATION
  Report Type: Spontaneous
  Country: US (occurrence: US)
  Receive Date: 20240223
  Receipt Date: 20240717
  Transmission Date: 20241017
  Serious: Yes (Hospitalization, Other)
  Sender: UNITED THERAPEUTICS
  Company Number: US-UNITED THERAPEUTICS-UNT-2024-005194

PATIENT
  Sex: Female

DRUGS (30)
  1. REMODULIN [Suspect]
     Active Substance: TREPROSTINIL
     Indication: Pulmonary arterial hypertension
     Dosage: 0.05869 ?G/KG, CONTINUING
  2. REMODULIN [Suspect]
     Active Substance: TREPROSTINIL
     Dosage: 0.04695 ?G/KG, CONTINUING
  3. REMODULIN [Suspect]
     Active Substance: TREPROSTINIL
     Dosage: UNK, CONTINUING
  4. REMODULIN [Suspect]
     Active Substance: TREPROSTINIL
     Indication: Pulmonary arterial hypertension
     Dosage: 0.04108 ?G/KG, CONTINUING
  5. REMODULIN [Suspect]
     Active Substance: TREPROSTINIL
     Dosage: 0.03521 ?G/KG (AT RATE OF 24UL/HR), CONTINUING
  6. REMODULIN [Suspect]
     Active Substance: TREPROSTINIL
     Dosage: UNK, CONTINUING
  7. REMODULIN [Suspect]
     Active Substance: TREPROSTINIL
     Indication: Pulmonary arterial hypertension
     Dosage: 0.01247 ?G/KG (USING 20ML MDV, RATE OF 17UL/HR), CONTINUING
  8. REMODULIN [Suspect]
     Active Substance: TREPROSTINIL
     Dosage: UNK, CONTINUING
  9. REMODULIN [Suspect]
     Active Substance: TREPROSTINIL
     Indication: Pulmonary arterial hypertension
     Dosage: 0.00734 ?G/KG, CONTINUING
  10. REMODULIN [Suspect]
     Active Substance: TREPROSTINIL
     Dosage: 0.01247 ?G/KG, CONTINUING
  11. REMODULIN [Suspect]
     Active Substance: TREPROSTINIL
     Dosage: 0.01761 ?G/KG, CONTINUING
  12. REMODULIN [Suspect]
     Active Substance: TREPROSTINIL
     Dosage: UNK, CONTINUING
  13. ORENITRAM [Suspect]
     Active Substance: TREPROSTINIL
     Indication: Pulmonary arterial hypertension
     Dosage: 1 MG, BID
     Dates: start: 202402
  14. ORENITRAM [Suspect]
     Active Substance: TREPROSTINIL
     Dosage: 3 MG (1 TABLET 2.5 MG+ 2 TABLETS 0.25 MG), BID
     Dates: start: 2024
  15. ORENITRAM [Suspect]
     Active Substance: TREPROSTINIL
     Dosage: 4 MG (1 TABLET 2.5 MG+1 TABLET 1 MG+ 2 TABLETS 0.25 MG), BID
     Dates: start: 2024
  16. ORENITRAM [Suspect]
     Active Substance: TREPROSTINIL
     Dosage: 5 MG, BID
     Dates: start: 2024
  17. ORENITRAM [Suspect]
     Active Substance: TREPROSTINIL
     Dosage: 9 MG, BID (2 TABLET 0.25MG+1 TABLET 1MG+1 TABLET 2.5MG+1 TABLET 5MG)
     Dates: start: 2024
  18. ORENITRAM [Suspect]
     Active Substance: TREPROSTINIL
     Dosage: 10 MG, BID (2 TABLET 5MG)
     Dates: start: 2024
  19. ORENITRAM [Suspect]
     Active Substance: TREPROSTINIL
     Dosage: 12 MG, BID (2 TABLET 1 MG + 2 TABLET 5 MG)
     Dates: start: 2024, end: 202404
  20. ORENITRAM [Suspect]
     Active Substance: TREPROSTINIL
     Dosage: 13 MG, BID (2 TABLET 5 MG + 1 TABLET 2.5 MG + 2 TABLET 0.25 MG)
     Dates: start: 20240404
  21. ORENITRAM [Suspect]
     Active Substance: TREPROSTINIL
     Dosage: 12.5 MG (2 TABLET 5MG +1 TABLET 2.5MG), BID
     Dates: start: 2024
  22. ORENITRAM [Suspect]
     Active Substance: TREPROSTINIL
     Dosage: 11.5 MG (2 TABLET 5MG + 2 TABLET 0.25MG + 1 TABLET 1 MG), BID
     Dates: start: 2024
  23. ORENITRAM [Suspect]
     Active Substance: TREPROSTINIL
     Dosage: 11 MG, BID (1 TABLET -1MG AND 2 TABLETS -5MG)
     Dates: start: 2024
  24. ORENITRAM [Suspect]
     Active Substance: TREPROSTINIL
     Dosage: UNK
  25. ORENITRAM [Suspect]
     Active Substance: TREPROSTINIL
     Indication: Pulmonary arterial hypertension
     Dosage: UNK
  26. ORENITRAM [Suspect]
     Active Substance: TREPROSTINIL
     Indication: Pulmonary arterial hypertension
     Dosage: UNK
  27. ORENITRAM [Suspect]
     Active Substance: TREPROSTINIL
     Indication: Pulmonary arterial hypertension
     Dosage: UNK
  28. ORENITRAM [Suspect]
     Active Substance: TREPROSTINIL
     Indication: Pulmonary arterial hypertension
     Dosage: UNK
  29. SILDENAFIL [Suspect]
     Active Substance: SILDENAFIL
     Indication: Product used for unknown indication
     Dosage: UNK
  30. PROLIA [Concomitant]
     Active Substance: DENOSUMAB
     Indication: Product used for unknown indication
     Dosage: UNK

REACTIONS (24)
  - Fatigue [Not Recovered/Not Resolved]
  - Diarrhoea [Not Recovered/Not Resolved]
  - Headache [Not Recovered/Not Resolved]
  - Nausea [Not Recovered/Not Resolved]
  - Dizziness [Not Recovered/Not Resolved]
  - Heart rate irregular [Not Recovered/Not Resolved]
  - Hypotension [Not Recovered/Not Resolved]
  - Arrhythmia [Not Recovered/Not Resolved]
  - Dyspnoea [Recovering/Resolving]
  - Oedema [Recovering/Resolving]
  - Localised oedema [Not Recovered/Not Resolved]
  - Brain fog [Not Recovered/Not Resolved]
  - Pain in jaw [Not Recovered/Not Resolved]
  - Infusion site pain [Recovered/Resolved]
  - Dyspnoea exertional [Not Recovered/Not Resolved]
  - Muscle spasms [Not Recovered/Not Resolved]
  - Dizziness postural [Recovered/Resolved]
  - Cough [Not Recovered/Not Resolved]
  - Oedema peripheral [Not Recovered/Not Resolved]
  - Decreased appetite [Not Recovered/Not Resolved]
  - Vomiting [Not Recovered/Not Resolved]
  - Device failure [Recovered/Resolved]
  - Device occlusion [Recovered/Resolved]
  - Product dose omission in error [Recovered/Resolved]

NARRATIVE: CASE EVENT DATE: 20240101
